FAERS Safety Report 6897688-2 (Version None)
Quarter: 2010Q3

REPORT INFORMATION
  Report Type: 
  Country: None (occurrence: None)
  Receive Date: 20100802
  Receipt Date: 20070702
  Transmission Date: 20110219
  Serious: Yes (Other)
  Sender: FDA-Public Use
  Company Number: US-PFIZER INC-2007055284

PATIENT
  Sex: Female
  Weight: 67.727 kg

DRUGS (3)
  1. LYRICA [Suspect]
     Indication: FIBROMYALGIA
     Dates: start: 20050101
  2. NEXIUM [Concomitant]
  3. TAMOXIFEN CITRATE [Concomitant]

REACTIONS (7)
  - JOINT SWELLING [None]
  - MUSCLE SPASMS [None]
  - MUSCULAR WEAKNESS [None]
  - MYALGIA [None]
  - OEDEMA PERIPHERAL [None]
  - URINARY INCONTINENCE [None]
  - WEIGHT INCREASED [None]
